FAERS Safety Report 8284083-7 (Version None)
Quarter: 2012Q2

REPORT INFORMATION
  Report Type: 
  Country: None (occurrence: None)
  Receive Date: 20120413
  Receipt Date: 20110823
  Transmission Date: 20120825
  Serious: No
  Sender: FDA-Public Use
  Company Number: US-ASTRAZENECA-2011SE46547

PATIENT
  Age: 44 Year
  Sex: Male

DRUGS (2)
  1. NEXIUM [Suspect]
     Route: 048
  2. NEXIUM IV [Suspect]
     Route: 042

REACTIONS (7)
  - OEDEMA PERIPHERAL [None]
  - DRUG DOSE OMISSION [None]
  - REGURGITATION [None]
  - GASTROOESOPHAGEAL REFLUX DISEASE [None]
  - HERNIA [None]
  - WEIGHT DECREASED [None]
  - PAIN [None]
